FAERS Safety Report 23244841 (Version 3)
Quarter: 2024Q1

REPORT INFORMATION
  Report Type: Report from Study
  Country: US (occurrence: US)
  Receive Date: 20231130
  Receipt Date: 20240318
  Transmission Date: 20240410
  Serious: Yes (Other)
  Sender: FDA-Public Use
  Company Number: US-002147023-NVSC2023US254565

PATIENT
  Age: 44 Year
  Sex: Female

DRUGS (1)
  1. KESIMPTA [Suspect]
     Active Substance: OFATUMUMAB
     Indication: Product used for unknown indication
     Dosage: UNK, QW
     Route: 065
     Dates: start: 20231121

REACTIONS (13)
  - Deafness [Unknown]
  - Fatigue [Recovered/Resolved]
  - Somnolence [Recovered/Resolved]
  - Upper respiratory tract infection [Unknown]
  - Ear infection [Unknown]
  - Ear congestion [Unknown]
  - Hypoacusis [Unknown]
  - Tinnitus [Unknown]
  - Eustachian tube dysfunction [Unknown]
  - Feeling abnormal [Unknown]
  - Abdominal discomfort [Unknown]
  - Middle ear effusion [Unknown]
  - Ear pain [Unknown]

NARRATIVE: CASE EVENT DATE: 20231122
